FAERS Safety Report 11987871 (Version 1)
Quarter: 2016Q1

REPORT INFORMATION
  Report Type: Spontaneous
  Country: US (occurrence: None)
  Receive Date: 20160201
  Receipt Date: 20160201
  Transmission Date: 20160526
  Serious: Yes (Hospitalization, Disabling)
  Sender: FDA-Public Use
  Company Number: None

PATIENT
  Age: 77 Year
  Sex: Male
  Weight: 108.86 kg

DRUGS (2)
  1. AMIODARONE [Suspect]
     Active Substance: AMIODARONE
     Indication: ATRIAL FIBRILLATION
  2. AMIODARONE [Suspect]
     Active Substance: AMIODARONE
     Indication: ISCHAEMIA

REACTIONS (11)
  - Toxicity to various agents [None]
  - Basal ganglion degeneration [None]
  - Tremor [None]
  - Extrasystoles [None]
  - Hypoaesthesia [None]
  - Cataract [None]
  - Neuropathy peripheral [None]
  - Cholelithiasis [None]
  - Thyroid disorder [None]
  - Hepatic steatosis [None]
  - Gastrointestinal disorder [None]

NARRATIVE: CASE EVENT DATE: 20150211
